FAERS Safety Report 23426762 (Version 3)
Quarter: 2024Q1

REPORT INFORMATION
  Report Type: Other
  Country: HU (occurrence: None)
  Receive Date: 20240122
  Receipt Date: 20240211
  Transmission Date: 20240410
  Serious: Yes (Other)
  Sender: FDA-Public Use
  Company Number: HU-ROCHE-3493793

PATIENT
  Age: 84 Year
  Sex: Female

DRUGS (8)
  1. AVASTIN [Suspect]
     Active Substance: BEVACIZUMAB
     Indication: Antiangiogenic therapy
     Route: 050
     Dates: start: 20221028
  2. AVASTIN [Suspect]
     Active Substance: BEVACIZUMAB
     Indication: Neovascular age-related macular degeneration
  3. ARILLA [Concomitant]
  4. SPIRONOLACTONE [Concomitant]
     Active Substance: SPIRONOLACTONE
  5. POTASSIUM CHLORIDE [Concomitant]
     Active Substance: POTASSIUM CHLORIDE
  6. ASPIRIN [Concomitant]
     Active Substance: ASPIRIN
  7. LEVOFLOXACIN [Concomitant]
     Active Substance: LEVOFLOXACIN
     Dosage: DROPS 4X
  8. ETHAMSYLATE [Concomitant]
     Active Substance: ETHAMSYLATE

REACTIONS (5)
  - Retinal haemorrhage [Unknown]
  - Choroidal detachment [Unknown]
  - Vitreous haemorrhage [Unknown]
  - Off label use [Unknown]
  - Off label use [Unknown]

NARRATIVE: CASE EVENT DATE: 20221207
